FAERS Safety Report 20846593 (Version 2)
Quarter: 2022Q2

REPORT INFORMATION
  Report Type: Spontaneous
  Country: CN (occurrence: CN)
  Receive Date: 20220518
  Receipt Date: 20220603
  Transmission Date: 20220721
  Serious: Yes (Other)
  Sender: FDA-Public Use
  Company Number: CN-SUN PHARMACEUTICAL INDUSTRIES LTD-2022R1-337069

PATIENT
  Age: 29 Year
  Sex: Female

DRUGS (8)
  1. HYDROXYCHLOROQUINE [Suspect]
     Active Substance: HYDROXYCHLOROQUINE
     Indication: Antiphospholipid syndrome
     Dosage: 100 MILLIGRAM, TID
     Route: 065
  2. PREDNISONE [Suspect]
     Active Substance: PREDNISONE
     Indication: Antiphospholipid syndrome
     Dosage: 7.5 MILLIGRAM, QD
     Route: 048
  3. PREDNISONE [Suspect]
     Active Substance: PREDNISONE
     Dosage: 10 MILLIGRAM, BID
     Route: 048
  4. PREDNISONE [Suspect]
     Active Substance: PREDNISONE
     Dosage: 20 MILLIGRAM, BID
     Route: 048
  5. CYCLOSPORINE [Suspect]
     Active Substance: CYCLOSPORINE
     Indication: Antiphospholipid syndrome
     Dosage: 50 MILLIGRAM, TID
     Route: 065
  6. CEFOPERAZONE [Concomitant]
     Active Substance: CEFOPERAZONE
     Indication: Evidence based treatment
     Dosage: THREE DOSES
     Route: 065
  7. DYDROGESTERONE [Concomitant]
     Active Substance: DYDROGESTERONE
     Indication: Vaginal haemorrhage
     Dosage: 10 MILLIGRAM, TID
     Route: 065
  8. SULBACTAM SODIUM [Concomitant]
     Active Substance: SULBACTAM SODIUM
     Indication: Evidence based treatment
     Dosage: 2 G PER DOSE
     Route: 065

REACTIONS (3)
  - Exposure during pregnancy [Unknown]
  - Impetigo herpetiformis [Recovered/Resolved]
  - Stillbirth [Unknown]
